FAERS Safety Report 9741038 (Version 1)
Quarter: 2013Q4

REPORT INFORMATION
  Report Type: Spontaneous
  Country: JP (occurrence: JP)
  Receive Date: 20131209
  Receipt Date: 20131209
  Transmission Date: 20140711
  Serious: Yes (Other)
  Sender: FDA-Public Use
  Company Number: JP-PFIZER INC-2013350560

PATIENT
  Age: 64 Year
  Sex: Male

DRUGS (7)
  1. CELECOX [Suspect]
     Dosage: 200 MG, DAILY
     Route: 048
     Dates: start: 20130729, end: 20131003
  2. CYTOTEC [Suspect]
     Dosage: UNK
     Route: 048
     Dates: start: 20130729, end: 20131003
  3. MADOPAR [Concomitant]
     Dosage: UNK
  4. BLOPRESS [Concomitant]
     Dosage: UNK
  5. PLAVIX [Concomitant]
     Dosage: UNK
  6. GABALON [Concomitant]
     Dosage: UNK
  7. ADALAT CR [Concomitant]
     Dosage: UNK

REACTIONS (1)
  - Hepatic function abnormal [Unknown]
